FAERS Safety Report 7020113-8 (Version None)
Quarter: 2010Q3

REPORT INFORMATION
  Report Type: 
  Country: None (occurrence: None)
  Receive Date: 20100929
  Receipt Date: 20100923
  Transmission Date: 20110219
  Serious: Yes (Hospitalization)
  Sender: FDA-Public Use
  Company Number: FR-JNJFOC-20030903702

PATIENT
  Age: 67 Year
  Sex: Male

DRUGS (2)
  1. TYLENOL W/ CODEINE [Suspect]
     Indication: BACK PAIN
  2. ALCOHOL [Concomitant]

REACTIONS (1)
  - PANCREATITIS ACUTE [None]
